FAERS Safety Report 12267781 (Version 1)
Quarter: 2016Q2

REPORT INFORMATION
  Report Type: Spontaneous
  Country: US (occurrence: US)
  Receive Date: 20160414
  Receipt Date: 20160414
  Transmission Date: 20160815
  Serious: No
  Sender: FDA-Public Use
  Company Number: US-BAYER-2016-066167

PATIENT
  Sex: Female

DRUGS (3)
  1. MIRALAX [Suspect]
     Active Substance: POLYETHYLENE GLYCOL 3350
     Indication: COLONOSCOPY
     Dosage: 14 DF,EVERY 15 MIN
     Route: 048
     Dates: start: 201601
  2. DULCOLAX (BISACODYL) [Concomitant]
     Active Substance: BISACODYL
  3. MAGNESIUM CITRATE. [Concomitant]
     Active Substance: MAGNESIUM CITRATE

REACTIONS (4)
  - Overdose [None]
  - Product use issue [None]
  - Product use issue [None]
  - Off label use [None]

NARRATIVE: CASE EVENT DATE: 201604
